FAERS Safety Report 9222676 (Version 1)
Quarter: 2013Q1

REPORT INFORMATION
  Report Type: Spontaneous
  Country: US (occurrence: None)
  Receive Date: 20120914
  Receipt Date: 20120914
  Transmission Date: 20140127
  Serious: Yes (Other)
  Sender: FDA-Public Use
  Company Number: JPI-P-021729

PATIENT
  Age: 42 Year
  Sex: Female

DRUGS (1)
  1. XYREM [Suspect]
     Indication: NARCOLEPSY
     Dosage: 2.25 GM 2 IN 1 D
     Route: 048
     Dates: start: 20120419, end: 2012

REACTIONS (3)
  - Blood pressure increased [None]
  - Hyperhidrosis [None]
  - Acne [None]
